FAERS Safety Report 9917624 (Version 1)
Quarter: 2014Q1

REPORT INFORMATION
  Report Type: Report from Study
  Country: GR (occurrence: GR)
  Receive Date: 20140221
  Receipt Date: 20140221
  Transmission Date: 20141002
  Serious: Yes (Death)
  Sender: FDA-Public Use
  Company Number: GR-PFIZER INC-2014047204

PATIENT
  Age: 11 Year
  Sex: Female
  Weight: 22 kg

DRUGS (4)
  1. PREGABALIN [Suspect]
     Indication: PARTIAL SEIZURES
     Dosage: 10 MG/KG, UNK
     Route: 048
     Dates: start: 20131209
  2. KEPPRA [Concomitant]
     Indication: PARTIAL SEIZURES
     Dosage: 5.5 ML, 2X/DAY
     Route: 048
     Dates: start: 201110
  3. VIMPAT [Concomitant]
     Indication: PARTIAL SEIZURES
     Dosage: 100 MG, 2X/DAY
     Route: 048
     Dates: start: 201212
  4. FRISIUM [Concomitant]
     Indication: PARTIAL SEIZURES
     Dosage: 5 MG, 2X/DAY
     Route: 048
     Dates: start: 201304

REACTIONS (1)
  - Pulmonary oedema [Fatal]
